FAERS Safety Report 16355794 (Version 1)
Quarter: 2019Q2

REPORT INFORMATION
  Report Type: Spontaneous
  Country: DE (occurrence: DE)
  Receive Date: 20190525
  Receipt Date: 20190525
  Transmission Date: 20190711
  Serious: Yes (Life-Threatening, Other)
  Sender: FDA-Public Use
  Company Number: PHHY2019DE121130

PATIENT
  Sex: Female
  Weight: 13.16 kg

DRUGS (5)
  1. THIOTEPA. [Suspect]
     Active Substance: THIOTEPA
     Indication: BONE MARROW CONDITIONING REGIMEN
     Dosage: 130 MG, QD
     Route: 042
     Dates: start: 20181125, end: 20181125
  2. BUSILVEX [Suspect]
     Active Substance: BUSULFAN
     Indication: BONE MARROW CONDITIONING REGIMEN
     Dosage: 62.4 MG, QD IN DAY 1
     Route: 042
     Dates: start: 20181120, end: 20181121
  3. BUSILVEX [Suspect]
     Active Substance: BUSULFAN
     Dosage: 100 MG, QD (IN DAY 2)
     Route: 042
     Dates: start: 20181122, end: 20181122
  4. FLUDARABINE [Suspect]
     Active Substance: FLUDARABINE PHOSPHATE
     Indication: BONE MARROW CONDITIONING REGIMEN
     Dosage: 16.2 MG, QD
     Route: 042
     Dates: start: 20181120, end: 20181124
  5. BUSILVEX [Suspect]
     Active Substance: BUSULFAN
     Dosage: 70 MG, QD IN DAY 3
     Route: 042
     Dates: start: 20181123, end: 20181123

REACTIONS (2)
  - Concomitant disease progression [Recovered/Resolved]
  - Splenomegaly [Recovered/Resolved]

NARRATIVE: CASE EVENT DATE: 20190207
